FAERS Safety Report 7578323-7 (Version None)
Quarter: 2011Q2

REPORT INFORMATION
  Report Type: 
  Country: None (occurrence: None)
  Receive Date: 20110628
  Receipt Date: 20110624
  Transmission Date: 20111010
  Serious: Yes (Death, Hospitalization, Other)
  Sender: FDA-Public Use
  Company Number: IE-SANOFI-AVENTIS-2011SA035087

PATIENT
  Age: 54 Year
  Sex: Male

DRUGS (8)
  1. ATORVASTATIN [Interacting]
     Route: 065
  2. BUPRENORPHINE [Interacting]
     Indication: PAIN MANAGEMENT
     Route: 061
  3. FUSIDIC ACID [Interacting]
     Route: 065
  4. DOMPERIDONE [Interacting]
     Route: 065
  5. ATORVASTATIN [Interacting]
     Route: 065
  6. LANSOPRAZOLE [Interacting]
     Route: 065
  7. ASPIRIN [Interacting]
     Route: 065
  8. CLOPIDOGREL BISULFATE [Suspect]
     Route: 065

REACTIONS (10)
  - SEPTIC SHOCK [None]
  - CARDIAC ARREST [None]
  - RHABDOMYOLYSIS [None]
  - MYALGIA [None]
  - ANURIA [None]
  - METABOLIC DISORDER [None]
  - DRUG INTERACTION [None]
  - RENAL FAILURE ACUTE [None]
  - MUSCULAR WEAKNESS [None]
  - RESPIRATORY FAILURE [None]
